FAERS Safety Report 18632118 (Version 1)
Quarter: 2020Q4

REPORT INFORMATION
  Report Type: Spontaneous
  Country: CN (occurrence: CN)
  Receive Date: 20201217
  Receipt Date: 20201217
  Transmission Date: 20210114
  Serious: Yes (Other)
  Sender: FDA-Public Use
  Company Number: CN-JNJFOC-20201225615

PATIENT

DRUGS (1)
  1. RIVAROXABAN [Suspect]
     Active Substance: RIVAROXABAN
     Indication: PRODUCT USED FOR UNKNOWN INDICATION
     Route: 048

REACTIONS (7)
  - Labelled drug-drug interaction medication error [Unknown]
  - Ischaemic stroke [Unknown]
  - Atrial fibrillation [Unknown]
  - Haematoma [Recovering/Resolving]
  - Contraindicated product administered [Unknown]
  - Off label use [Unknown]
  - Subarachnoid haemorrhage [Unknown]
